FAERS Safety Report 5006247-8 (Version None)
Quarter: 2006Q1

REPORT INFORMATION
  Report Type: 
  Country: None (occurrence: None)
  Receive Date: 20060327
  Receipt Date: 20060213
  Transmission Date: 20060701
  Serious: Yes (Other)
  Sender: FDA-Public Use
  Company Number: 221839

PATIENT
  Age: 60 Year
  Sex: Female

DRUGS (5)
  1. AVASTIN [Suspect]
     Indication: METASTATIC RENAL CELL CARCINOMA
     Dosage: 10 MG/KG, UNK, UNK
     Dates: start: 20040601
  2. MS CONTIN [Concomitant]
  3. LASIX [Concomitant]
  4. ALTACE [Concomitant]
  5. ACTIQ [Concomitant]

REACTIONS (1)
  - HYPONATRAEMIA [None]
